FAERS Safety Report 9587648 (Version 1)
Quarter: 2013Q4

REPORT INFORMATION
  Report Type: Spontaneous
  Country: DE (occurrence: DE)
  Receive Date: 20131003
  Receipt Date: 20131003
  Transmission Date: 20140711
  Serious: Yes (Death, Life-Threatening, Hospitalization)
  Sender: FDA-Public Use
  Company Number: DE-BAXTER-2013BAX037899

PATIENT
  Age: 9 Week
  Sex: Male

DRUGS (3)
  1. ENDOXAN 1G [Suspect]
     Indication: RHABDOID TUMOUR
     Route: 042
     Dates: start: 20130619
  2. VINCRISTINE [Suspect]
     Indication: RHABDOID TUMOUR
     Route: 042
     Dates: start: 20130619
  3. ACTINOMYCIN-D [Suspect]
     Indication: RHABDOID TUMOUR
     Route: 042
     Dates: start: 20130619, end: 20130620

REACTIONS (2)
  - Venoocclusive disease [Fatal]
  - Septic shock [Fatal]
